FAERS Safety Report 8482917-4 (Version None)
Quarter: 2012Q3

REPORT INFORMATION
  Report Type: 
  Country: None (occurrence: None)
  Receive Date: 20120702
  Receipt Date: 20120622
  Transmission Date: 20120928
  Serious: Yes (Other)
  Sender: FDA-Public Use
  Company Number: US-ELI_LILLY_AND_COMPANY-US201007001624

PATIENT
  Sex: Female
  Weight: 66 kg

DRUGS (16)
  1. VITAMIN D [Concomitant]
  2. FORTEO [Suspect]
     Dosage: 20 UG, DAILY (1/D)
     Route: 065
  3. FORTEO [Suspect]
     Dosage: 20 UG, QD
     Route: 065
  4. FORTEO [Suspect]
     Dosage: UNK
     Dates: end: 20120610
  5. FORTEO [Suspect]
     Dosage: 20 UG, QD
  6. FORTEO [Suspect]
     Dosage: 20 UG, QD
     Route: 065
  7. FORTEO [Suspect]
     Dosage: 20 UG, QD
     Route: 065
  8. AMLODIPINE BESYLATE [Concomitant]
  9. VITAMIN B-12 [Concomitant]
  10. FORTEO [Suspect]
     Indication: OSTEOPOROSIS
     Dosage: 20 UG, DAILY (1/D)
     Dates: start: 20100615, end: 20100622
  11. PREDNISONE TAB [Concomitant]
     Indication: POLYMYALGIA RHEUMATICA
     Dosage: 40 MG, UNKNOWN
  12. FORTEO [Suspect]
     Dosage: 20 UG, QD
     Route: 065
  13. METOPROLOL [Concomitant]
     Indication: BLOOD PRESSURE
  14. ASPIRIN [Concomitant]
  15. FORTEO [Suspect]
     Dosage: 20 UG, DAILY (1/D)
  16. FORTEO [Suspect]
     Dosage: 20 UG, DAILY (1/D)

REACTIONS (22)
  - PERONEAL NERVE PALSY [None]
  - CONTUSION [None]
  - BLOOD CALCIUM INCREASED [None]
  - SWOLLEN TONGUE [None]
  - SWELLING FACE [None]
  - MUSCULOSKELETAL DISCOMFORT [None]
  - BREAST CANCER IN SITU [None]
  - NERVOUSNESS [None]
  - FALL [None]
  - MOVEMENT DISORDER [None]
  - VERTIGO [None]
  - FIBROCYSTIC BREAST DISEASE [None]
  - ERYTHEMA [None]
  - BREAST CALCIFICATIONS [None]
  - ACNE [None]
  - PAIN IN EXTREMITY [None]
  - FEELING HOT [None]
  - HYPOAESTHESIA [None]
  - BONE PAIN [None]
  - ASTHENIA [None]
  - DISCOMFORT [None]
  - RASH [None]
